FAERS Safety Report 6128107-1 (Version None)
Quarter: 2009Q1

REPORT INFORMATION
  Report Type: 
  Country: None (occurrence: None)
  Receive Date: 20090323
  Receipt Date: 20090312
  Transmission Date: 20090719
  Serious: Yes (Death)
  Sender: FDA-Public Use
  Company Number: US-JNJFOC-20071001794

PATIENT
  Age: 2 Month
  Sex: Female

DRUGS (3)
  1. PSEUDOEPHEDRINE HCL [Suspect]
     Indication: NASOPHARYNGITIS
     Dosage: UNKNOWN
  2. DEXTROMETHORPHAN HYDROBROMIDE [Suspect]
     Indication: NASOPHARYNGITIS
     Dosage: UNKNOWN
  3. BROMPHENIRAMINE [Suspect]
     Indication: NASOPHARYNGITIS
     Dosage: UNKNOWN

REACTIONS (3)
  - COMA [None]
  - DRUG TOXICITY [None]
  - PULMONARY OEDEMA [None]
